FAERS Safety Report 9338067 (Version 1)
Quarter: 2013Q2

REPORT INFORMATION
  Report Type: Spontaneous
  Country: AU (occurrence: AU)
  Receive Date: 20130610
  Receipt Date: 20130610
  Transmission Date: 20140414
  Serious: Yes (Other)
  Sender: FDA-Public Use
  Company Number: AU-ROCHE-1232177

PATIENT
  Sex: Female

DRUGS (2)
  1. LUCENTIS [Suspect]
     Indication: POLYPOIDAL CHOROIDAL VASCULOPATHY
     Route: 050
  2. AFLIBERCEPT [Suspect]
     Indication: PRODUCT USED FOR UNKNOWN INDICATION
     Route: 065

REACTIONS (3)
  - No therapeutic response [Unknown]
  - Haemorrhage [Unknown]
  - Polyp [Unknown]
